FAERS Safety Report 11813515 (Version 2)
Quarter: 2015Q4

REPORT INFORMATION
  Report Type: Spontaneous
  Country: AU (occurrence: AU)
  Receive Date: 20151209
  Receipt Date: 20151209
  Transmission Date: 20160305
  Serious: Yes (Death, Other)
  Sender: FDA-Public Use
  Company Number: AU-CELGENE-AUS-2015117355

PATIENT
  Age: 59 Year
  Sex: Male

DRUGS (5)
  1. THALOMID [Suspect]
     Active Substance: THALIDOMIDE
     Indication: PLASMA CELL MYELOMA
     Route: 048
  2. BORTEZOMIB [Concomitant]
     Active Substance: BORTEZOMIB
     Indication: PLASMA CELL MYELOMA
     Route: 065
  3. REVLIMID [Suspect]
     Active Substance: LENALIDOMIDE
     Indication: PLASMA CELL MYELOMA
     Route: 048
  4. ROMIDEPSIN [Suspect]
     Active Substance: ROMIDEPSIN
     Indication: PLASMA CELL MYELOMA
     Route: 041
  5. MARIZOMIB [Concomitant]
     Active Substance: MARIZOMIB
     Indication: PLASMA CELL MYELOMA
     Route: 065

REACTIONS (5)
  - Pyrexia [Unknown]
  - Influenza [Unknown]
  - Respiratory failure [Fatal]
  - Plasma cell myeloma [Unknown]
  - Candida infection [Unknown]
